FAERS Safety Report 8885618 (Version 2)
Quarter: 2013Q1

REPORT INFORMATION
  Report Type: Spontaneous
  Country: US (occurrence: US)
  Receive Date: 20121101
  Receipt Date: 20130114
  Transmission Date: 20140127
  Serious: Yes (Other)
  Sender: FDA-Public Use
  Company Number: US-PFIZER INC-2012267774

PATIENT
  Age: 51 Year
  Sex: Female

DRUGS (8)
  1. SUTENT [Suspect]
     Indication: METASTATIC RENAL CELL CARCINOMA
     Dosage: 50 MG, 1X/DAY
     Route: 048
     Dates: start: 201209, end: 201210
  2. ATENOL [Concomitant]
     Dosage: UNK
  3. CIPROFLOXACIN [Concomitant]
     Dosage: UNK
  4. KLONOPIN [Concomitant]
  5. XANAX [Concomitant]
     Dosage: UNK
  6. PERCOCET [Concomitant]
     Indication: PAIN
     Dosage: UNK
  7. PERCOCET [Concomitant]
     Indication: BACK PAIN
  8. PHENERGAN ^AVENTIS PHARMA^ [Concomitant]
     Indication: VOMITING
     Dosage: UNK

REACTIONS (20)
  - Blood alkaline phosphatase increased [Unknown]
  - Pyrexia [Recovered/Resolved]
  - Fatigue [Unknown]
  - Dysphonia [Not Recovered/Not Resolved]
  - Decreased appetite [Unknown]
  - Hyperhidrosis [Unknown]
  - Constipation [Recovered/Resolved]
  - Weight decreased [Unknown]
  - Dehydration [Unknown]
  - Upper respiratory tract infection [Unknown]
  - Chills [Unknown]
  - Musculoskeletal pain [Recovering/Resolving]
  - Back pain [Unknown]
  - Skin discolouration [Unknown]
  - Jaundice [Recovered/Resolved]
  - Aspartate aminotransferase increased [Unknown]
  - Alanine aminotransferase increased [Unknown]
  - Blood chloride decreased [Unknown]
  - Blood sodium decreased [Unknown]
  - Blood glucose increased [Unknown]
